FAERS Safety Report 6718182-5 (Version None)
Quarter: 2010Q2

REPORT INFORMATION
  Report Type: 
  Country: None (occurrence: None)
  Receive Date: 20100510
  Receipt Date: 20100428
  Transmission Date: 20101027
  Serious: Yes (Other)
  Sender: FDA-Public Use
  Company Number: FR-PFIZER INC-2010053519

PATIENT
  Age: 2 Year
  Sex: Male
  Weight: 13 kg

DRUGS (1)
  1. ZITHROMAX [Suspect]
     Dosage: 1 DOSE WEIGHT PER DAY

REACTIONS (3)
  - EATING DISORDER [None]
  - GINGIVAL DISORDER [None]
  - GINGIVAL SWELLING [None]
